FAERS Safety Report 7124101-2 (Version None)
Quarter: 2010Q4

REPORT INFORMATION
  Report Type: 
  Country: None (occurrence: None)
  Receive Date: 20101126
  Receipt Date: 20101116
  Transmission Date: 20110411
  Serious: Yes (Hospitalization)
  Sender: FDA-Public Use
  Company Number: JP-AMGEN-JPNCT2010006076

PATIENT

DRUGS (14)
  1. PANITUMUMAB [Suspect]
     Indication: COLORECTAL CANCER METASTATIC
     Dosage: 6 MG/KG, Q2WK
     Route: 041
     Dates: start: 20100824, end: 20100824
  2. PANITUMUMAB [Suspect]
     Dosage: 6 MG/KG, Q2WK
     Route: 041
     Dates: start: 20100916, end: 20100930
  3. IRINOTECAN HYDROCHLORIDE [Suspect]
     Indication: COLORECTAL CANCER
     Route: 041
     Dates: start: 20100824, end: 20100930
  4. FLUOROURACIL [Suspect]
     Indication: COLORECTAL CANCER
     Route: 040
     Dates: start: 20100824, end: 20100930
  5. FLUOROURACIL [Suspect]
     Route: 041
     Dates: start: 20100824, end: 20100930
  6. CALCIUM LEVOFOLINATE [Suspect]
     Indication: COLORECTAL CANCER
     Route: 041
     Dates: start: 20100824, end: 20100930
  7. AVASTIN [Suspect]
     Indication: COLORECTAL CANCER
     Dosage: UNK
     Route: 041
     Dates: start: 20090601, end: 20100101
  8. AVASTIN [Suspect]
     Route: 041
     Dates: start: 20100201, end: 20100501
  9. CORTICOSTEROIDS [Concomitant]
     Indication: PROPHYLAXIS
     Dosage: UNK
     Route: 065
  10. ANTIHISTAMINES [Concomitant]
     Indication: PROPHYLAXIS
     Dosage: UNK
     Route: 065
  11. KYTRIL [Concomitant]
     Dosage: UNK
     Route: 042
  12. DECADRON [Concomitant]
     Dosage: UNK
     Route: 042
  13. PREDNISOLONE [Concomitant]
     Dosage: UNK
     Route: 048
  14. SIMVASTATIN [Concomitant]
     Dosage: UNK
     Route: 048

REACTIONS (3)
  - DECREASED APPETITE [None]
  - DEEP VEIN THROMBOSIS [None]
  - DERMATITIS ACNEIFORM [None]
